FAERS Safety Report 22984429 (Version 3)
Quarter: 2023Q4

REPORT INFORMATION
  Report Type: Spontaneous
  Country: DE (occurrence: DE)
  Receive Date: 20230926
  Receipt Date: 20231120
  Transmission Date: 20240110
  Serious: Yes (Hospitalization)
  Sender: FDA-Public Use
  Company Number: DE-LEO Pharma-352664

PATIENT
  Age: 34 Year
  Sex: Male

DRUGS (7)
  1. ADBRY [Suspect]
     Active Substance: TRALOKINUMAB-LDRM
     Indication: Dermatitis atopic
     Dosage: FIRST DOSE, FOUR INJECTION (4X ADTRALZA? 150 MG (2X BY PATIENT HIMSELF)?4X150 MG / PRE-FILLED SYRING
     Route: 058
     Dates: start: 20230524
  2. ADBRY [Suspect]
     Active Substance: TRALOKINUMAB-LDRM
     Indication: Dermatitis atopic
     Dosage: FIRST DOSE, FOUR INJECTION (4X ADTRALZA? 150 MG (2X BY PATIENT HIMSELF)?4X150 MG / PRE-FILLED SYRING
     Route: 058
     Dates: start: 20230524
  3. ADBRY [Suspect]
     Active Substance: TRALOKINUMAB-LDRM
     Indication: Dermatitis atopic
     Dosage: SECOND DOSE WAS ON 08-JUN-2023. 2 X 150 MG VIA SUBCUTANEOUS ROUTE BY PATIENT HIMSELF
     Route: 058
     Dates: start: 20230608
  4. ADBRY [Suspect]
     Active Substance: TRALOKINUMAB-LDRM
     Indication: Dermatitis atopic
     Dosage: SECOND DOSE WAS ON 08-JUN-2023. 2 X 150 MG VIA SUBCUTANEOUS ROUTE BY PATIENT HIMSELF
     Route: 058
     Dates: start: 20230608
  5. ELIDEL [Concomitant]
     Active Substance: PIMECROLIMUS
     Indication: Product used for unknown indication
  6. MOMEALLERG [Concomitant]
     Indication: Rash
     Route: 003
  7. PREDNISOLONE [Concomitant]
     Active Substance: PREDNISOLONE
     Indication: Rash
     Dosage: NO POSOLOGY INFORMATION REPORTED
     Route: 048
     Dates: start: 202305

REACTIONS (11)
  - Dermatitis atopic [Unknown]
  - Rash maculo-papular [Recovered/Resolved]
  - Dermatitis atopic [Unknown]
  - Pruritus [Recovered/Resolved]
  - Disease recurrence [Unknown]
  - Rash [Recovered/Resolved]
  - Eosinophil count increased [Unknown]
  - Nausea [Recovered/Resolved]
  - General physical health deterioration [Unknown]
  - Headache [Recovered/Resolved]
  - Vomiting [Recovered/Resolved]

NARRATIVE: CASE EVENT DATE: 20230525
